FAERS Safety Report 9540765 (Version 2)
Quarter: 2013Q3

REPORT INFORMATION
  Report Type: Spontaneous
  Country: US (occurrence: US)
  Receive Date: 20130920
  Receipt Date: 20130923
  Transmission Date: 20140515
  Serious: No
  Sender: FDA-Public Use
  Company Number: US-009507513-1309USA008703

PATIENT
  Age: 18 Year
  Sex: Female

DRUGS (2)
  1. IMPLANON [Suspect]
     Indication: CONTRACEPTION
     Dosage: LEFT ARM
     Route: 059
     Dates: start: 20130429, end: 20130429
  2. IMPLANON [Suspect]
     Dosage: LEFT ARM
     Route: 059
     Dates: start: 20130429

REACTIONS (4)
  - Device expulsion [Recovered/Resolved]
  - Device deployment issue [Unknown]
  - Medical device complication [Unknown]
  - Haemorrhage [Not Recovered/Not Resolved]
